FAERS Safety Report 4456060-5 (Version None)
Quarter: 2004Q3

REPORT INFORMATION
  Report Type: 
  Country: None (occurrence: None)
  Receive Date: 20040920
  Receipt Date: 20040907
  Transmission Date: 20050211
  Serious: Yes (Hospitalization)
  Sender: FDA-Public Use
  Company Number: B0340876A

PATIENT
  Sex: Male

DRUGS (3)
  1. NICODERM CQ [Suspect]
     Indication: SMOKING CESSATION THERAPY
     Dosage: 21 MG PER DAY, TRANSDERMAL
     Route: 062
     Dates: start: 20040504
  2. NICODERM CQ [Suspect]
     Indication: SMOKING CESSATION THERAPY
     Dosage: 14 MG PER DAY, TRANSDERMAL
     Route: 062
  3. NICODERM Q PATCH (NICOTINE) [Suspect]
     Indication: SMOKING CESSATION THERAPY
     Dosage: 7 MG PER DAY, TRANSDERMAL
     Route: 062
     Dates: end: 20040729

REACTIONS (4)
  - ABDOMINAL PAIN UPPER [None]
  - COLITIS ISCHAEMIC [None]
  - DYSGEUSIA [None]
  - RECTAL HAEMORRHAGE [None]
